FAERS Safety Report 16582493 (Version 1)
Quarter: 2019Q3

REPORT INFORMATION
  Report Type: Spontaneous
  Country: US (occurrence: US)
  Receive Date: 20190717
  Receipt Date: 20190717
  Transmission Date: 20191004
  Serious: No
  Sender: FDA-Public Use
  Company Number: US-LUPIN PHARMACEUTICALS INC.-2019-01097

PATIENT
  Sex: Female

DRUGS (1)
  1. CEFADROXIL. [Suspect]
     Active Substance: CEFADROXIL
     Indication: EYE INFECTION
     Dosage: 1 DOSAGE FORM (PILL)
     Route: 065
     Dates: start: 201610

REACTIONS (3)
  - Dehydration [Unknown]
  - Hypersensitivity [Unknown]
  - Vomiting [Unknown]
